FAERS Safety Report 23895944 (Version 2)
Quarter: 2024Q2

REPORT INFORMATION
  Report Type: Spontaneous
  Country: AU (occurrence: AU)
  Receive Date: 20240524
  Receipt Date: 20240531
  Transmission Date: 20240716
  Serious: Yes (Other)
  Sender: FDA-Public Use
  Company Number: None

PATIENT
  Age: 1 Day

DRUGS (6)
  1. BETAMETHASONE [Suspect]
     Active Substance: BETAMETHASONE\BETAMETHASONE DIPROPIONATE
     Dosage: 11.4 MILLIGRAM
     Route: 064
  2. MORPHINE [Suspect]
     Active Substance: MORPHINE
     Dosage: 7.5 MILLIGRAM
     Route: 064
  3. ONDANSETRON [Suspect]
     Active Substance: ONDANSETRON
     Dosage: 8 MILLIGRAM
     Route: 064
  4. NIFEDIPINE [Suspect]
     Active Substance: NIFEDIPINE
     Dosage: 60 MILLIGRAM
     Route: 064
  5. ALBUTEROL SULFATE [Suspect]
     Active Substance: ALBUTEROL SULFATE
     Dosage: UNK
     Route: 064
  6. STERILE WATER [Suspect]
     Active Substance: WATER
     Dosage: 2 INTRADERMAL (INTRACUTANEOUS) INJECTIONS WERE ADMINISTERED INTO 2 LOCATIONS (ON THE LEFT AND RIGHT
     Route: 064

REACTIONS (2)
  - Premature baby [Unknown]
  - Foetal exposure during pregnancy [Unknown]
